FAERS Safety Report 6205801-5 (Version None)
Quarter: 2009Q2

REPORT INFORMATION
  Report Type: 
  Country: None (occurrence: None)
  Receive Date: 20090527
  Receipt Date: 20090427
  Transmission Date: 20091009
  Serious: No
  Sender: FDA-Public Use
  Company Number: US-ABBOTT-09P-163-0570226-00

PATIENT
  Sex: Male
  Weight: 69.916 kg

DRUGS (4)
  1. SIMCOR [Suspect]
     Indication: BLOOD CHOLESTEROL INCREASED
     Dosage: 1000/20 MG DAILY
     Dates: start: 20090418
  2. SIMCOR [Suspect]
     Indication: CALCINOSIS
     Dosage: 500/20 MG DAILY
     Dates: start: 20090318, end: 20090419
  3. ASPIRIN [Concomitant]
     Indication: PROPHYLAXIS
  4. ASPIRIN [Concomitant]
     Indication: ADVERSE DRUG REACTION

REACTIONS (1)
  - RASH [None]
